FAERS Safety Report 24239595 (Version 2)
Quarter: 2024Q4

REPORT INFORMATION
  Report Type: Spontaneous
  Country: US (occurrence: US)
  Receive Date: 20240822
  Receipt Date: 20241125
  Transmission Date: 20250115
  Serious: No
  Sender: AVADEL CNS PHARMACEUTICALS, LLC
  Company Number: US-AVADEL CNS PHARMACEUTICALS, LLC-2024AVA00786

PATIENT
  Sex: Female
  Weight: 102.04 kg

DRUGS (21)
  1. LUMRYZ [Suspect]
     Active Substance: SODIUM OXYBATE
     Indication: Narcolepsy
     Dosage: 6 G, ONCE NIGHTLY
     Route: 048
     Dates: start: 202405, end: 20240513
  2. LUMRYZ [Suspect]
     Active Substance: SODIUM OXYBATE
     Indication: Cataplexy
  3. LUMRYZ [Suspect]
     Active Substance: SODIUM OXYBATE
     Indication: Narcolepsy
     Dosage: 7.5 G, ONCE NIGHTLY AT BEDTIME
     Route: 048
     Dates: start: 20240514, end: 20240823
  4. LUMRYZ [Suspect]
     Active Substance: SODIUM OXYBATE
     Indication: Cataplexy
  5. LUMRYZ [Suspect]
     Active Substance: SODIUM OXYBATE
     Indication: Narcolepsy
     Dosage: 9 G, ONCE NIGHTLY
     Route: 048
     Dates: start: 20240824, end: 2024
  6. LUMRYZ [Suspect]
     Active Substance: SODIUM OXYBATE
     Indication: Cataplexy
     Dosage: 9 G, ONCE NIGHTLY
     Route: 048
     Dates: start: 2024, end: 20241004
  7. LUMRYZ [Suspect]
     Active Substance: SODIUM OXYBATE
     Indication: Narcolepsy
     Dosage: 4.5 G
     Route: 048
     Dates: start: 20240430, end: 202405
  8. LUMRYZ [Suspect]
     Active Substance: SODIUM OXYBATE
     Indication: Cataplexy
  9. ARMODAFINIL [Concomitant]
     Active Substance: ARMODAFINIL
     Dosage: 125 MG, 1X/DAY WHEN SHE WAKES IN THE MORNING
     Dates: end: 2024
  10. ARMODAFINIL [Concomitant]
     Active Substance: ARMODAFINIL
     Dosage: 125 MG, 1X/DAY WHEN SHE WAKES IN THE MORNING
     Dates: start: 2024
  11. LORATADINE [Concomitant]
     Active Substance: LORATADINE
  12. MELATONIN [Concomitant]
     Active Substance: MELATONIN
  13. CYCLOBENZAPRINE HYDROCHLORIDE [Concomitant]
     Active Substance: CYCLOBENZAPRINE HYDROCHLORIDE
     Dosage: 10 MG, AS NEEDED (SHE BELIEVED SHE DIDN^T TAKE ANY DURING THE LUMRYZ PERIOD)
  14. MELOXICAM [Concomitant]
     Active Substance: MELOXICAM
     Dosage: 15 MG, AS NEEDED
  15. LORAZEPAM [Concomitant]
     Active Substance: LORAZEPAM
     Dosage: 0.5 MG, AS NEEDED
  16. ZOLPIDEM TARTRATE [Concomitant]
     Active Substance: ZOLPIDEM TARTRATE
     Dosage: 5 MG ON NIGHTS SHE COULDN^T TAKE XYWAV/LUMRYZ
  17. VASCEPA [Concomitant]
     Active Substance: ICOSAPENT ETHYL
     Dosage: 2 G, 2X/DAY
  18. ATORVASTATIN CALCIUM [Concomitant]
     Active Substance: ATORVASTATIN CALCIUM
     Dosage: 20 MG AT NIGHT
  19. SERTRALINE HYDROCHLORIDE [Concomitant]
     Active Substance: SERTRALINE HYDROCHLORIDE
     Dosage: 100 MG AT NIGHT
  20. WELLBUTRIN SR [Concomitant]
     Active Substance: BUPROPION HYDROCHLORIDE
     Dosage: 150 MG IN THE MORNING
  21. ZALEPLON [Concomitant]
     Active Substance: ZALEPLON

REACTIONS (19)
  - Initial insomnia [Not Recovered/Not Resolved]
  - Insomnia [Recovered/Resolved]
  - Urinary incontinence [Not Recovered/Not Resolved]
  - Cough [Not Recovered/Not Resolved]
  - Stress [Not Recovered/Not Resolved]
  - Feeling abnormal [Recovering/Resolving]
  - Middle insomnia [Not Recovered/Not Resolved]
  - Tension headache [Recovered/Resolved]
  - Muscle tightness [Not Recovered/Not Resolved]
  - Sinusitis [Unknown]
  - Poor quality sleep [Recovered/Resolved]
  - Tension [Recovered/Resolved]
  - Somnolence [Recovered/Resolved]
  - Hyperhidrosis [Not Recovered/Not Resolved]
  - Blood pressure increased [Recovered/Resolved]
  - Depressed mood [Recovered/Resolved]
  - Agitation [Recovered/Resolved]
  - Anxiety [Recovered/Resolved]
  - Drug ineffective [Recovered/Resolved]

NARRATIVE: CASE EVENT DATE: 20240101
